FAERS Safety Report 7268045-4 (Version None)
Quarter: 2011Q1

REPORT INFORMATION
  Report Type: 
  Country: None (occurrence: None)
  Receive Date: 20110201
  Receipt Date: 20110127
  Transmission Date: 20110831
  Serious: Yes (Hospitalization, Other)
  Sender: FDA-Public Use
  Company Number: US-ABBOTT-11P-163-0701316-00

PATIENT
  Sex: Female
  Weight: 83.99 kg

DRUGS (5)
  1. LEXAPRO [Concomitant]
     Indication: DEPRESSION
  2. MERCAPTOPURINE [Concomitant]
     Indication: PRODUCT USED FOR UNKNOWN INDICATION
  3. MERCAPTOPURINE [Concomitant]
  4. HUMIRA [Suspect]
     Indication: CROHN'S DISEASE
     Dates: start: 20071101
  5. HUMIRA [Suspect]
     Dates: start: 20090101

REACTIONS (2)
  - CROHN'S DISEASE [None]
  - CERVICAL DYSPLASIA [None]
